FAERS Safety Report 7731160-2 (Version None)
Quarter: 2011Q3

REPORT INFORMATION
  Report Type: 
  Country: None (occurrence: None)
  Receive Date: 20110906
  Receipt Date: 20110906
  Transmission Date: 20111222
  Serious: Yes (Life-Threatening, Other)
  Sender: FDA-Public Use
  Company Number: None

PATIENT
  Age: 78 Year
  Sex: Male
  Weight: 88.45 kg

DRUGS (2)
  1. CEPHALEXIN [Suspect]
     Indication: WOUND SECRETION
     Dosage: 1
     Route: 048
     Dates: start: 20110829, end: 20110902
  2. CEPHALEXIN [Suspect]
     Indication: INFECTION PROPHYLAXIS
     Dosage: 1
     Route: 048
     Dates: start: 20110829, end: 20110902

REACTIONS (7)
  - NERVOUSNESS [None]
  - ILL-DEFINED DISORDER [None]
  - IMPAIRED DRIVING ABILITY [None]
  - SOMNOLENCE [None]
  - WITHDRAWAL SYNDROME [None]
  - ABDOMINAL DISCOMFORT [None]
  - DYSKINESIA [None]
